FAERS Safety Report 13892461 (Version 2)
Quarter: 2021Q2

REPORT INFORMATION
  Report Type: Report from Study
  Country: AU (occurrence: AU)
  Receive Date: 20170822
  Receipt Date: 20210527
  Transmission Date: 20210716
  Serious: Yes (Hospitalization, Other)
  Sender: FDA-Public Use
  Company Number: PHHY2015AU167774

PATIENT
  Age: 53 Year
  Sex: Male
  Weight: 92 kg

DRUGS (5)
  1. DABRAFENIB [Suspect]
     Active Substance: DABRAFENIB
     Dosage: 150 MG, BID
     Route: 048
  2. DABRAFENIB [Suspect]
     Active Substance: DABRAFENIB
     Indication: ERDHEIM-CHESTER DISEASE
     Dosage: 150 MG, BID
     Route: 048
     Dates: start: 20150416, end: 20150601
  3. DABRAFENIB [Suspect]
     Active Substance: DABRAFENIB
     Dosage: 75 MG, BID
     Route: 048
     Dates: start: 20150601
  4. DABRAFENIB [Suspect]
     Active Substance: DABRAFENIB
     Dosage: 75 MG, BID
     Route: 048
  5. MEKINIST [Suspect]
     Active Substance: TRAMETINIB DIMETHYL SULFOXIDE
     Indication: ERDHEIM-CHESTER DISEASE
     Dosage: 2 MG, QD
     Route: 048
     Dates: start: 20150416

REACTIONS (6)
  - Musculoskeletal pain [Recovered/Resolved]
  - Product dose omission issue [Unknown]
  - Subcutaneous abscess [Unknown]
  - Febrile neutropenia [Unknown]
  - Skin toxicity [Unknown]
  - Pyrexia [Recovered/Resolved]

NARRATIVE: CASE EVENT DATE: 20150601
